FAERS Safety Report 7267239-1 (Version None)
Quarter: 2011Q1

REPORT INFORMATION
  Report Type: 
  Country: None (occurrence: None)
  Receive Date: 20110201
  Receipt Date: 20101220
  Transmission Date: 20110831
  Serious: Yes (Other)
  Sender: FDA-Public Use
  Company Number: US-BAYER-201033847NA

PATIENT
  Sex: Female

DRUGS (7)
  1. ZANTAC [Concomitant]
     Indication: PAIN
  2. NAPROXEN [Concomitant]
  3. YAZ [Suspect]
     Indication: PRODUCT USED FOR UNKNOWN INDICATION
     Route: 048
  4. YASMIN [Suspect]
     Indication: PRODUCT USED FOR UNKNOWN INDICATION
     Route: 048
  5. OCELLA [Suspect]
     Indication: PRODUCT USED FOR UNKNOWN INDICATION
     Route: 048
  6. GLUCOPHAGE [Concomitant]
     Indication: PRODUCT USED FOR UNKNOWN INDICATION
  7. UNCODEABLE ^UNCLASSIFIABLE^ [Concomitant]
     Indication: PAIN

REACTIONS (6)
  - ABDOMINAL PAIN UPPER [None]
  - PYREXIA [None]
  - GASTRITIS [None]
  - CHOLELITHIASIS [None]
  - VOMITING [None]
  - NAUSEA [None]
